FAERS Safety Report 15656548 (Version 3)
Quarter: 2022Q1

REPORT INFORMATION
  Report Type: Spontaneous
  Country: US (occurrence: US)
  Receive Date: 20181126
  Receipt Date: 20220217
  Transmission Date: 20220423
  Serious: Yes (Other)
  Sender: FDA-Public Use
  Company Number: US-GILEAD-2018-0376055

PATIENT
  Age: 48 Year
  Sex: Male
  Weight: 87.075 kg

DRUGS (72)
  1. TRUVADA [Suspect]
     Active Substance: EMTRICITABINE\TENOFOVIR DISOPROXIL FUMARATE
     Indication: HIV infection
     Dosage: UNK
     Route: 048
     Dates: end: 2017
  2. TRUVADA [Suspect]
     Active Substance: EMTRICITABINE\TENOFOVIR DISOPROXIL FUMARATE
     Dosage: UNK
     Route: 048
     Dates: start: 20131025, end: 2014
  3. TRUVADA [Suspect]
     Active Substance: EMTRICITABINE\TENOFOVIR DISOPROXIL FUMARATE
     Dosage: UNK
     Route: 065
     Dates: start: 20131025, end: 201907
  4. TRUVADA [Suspect]
     Active Substance: EMTRICITABINE\TENOFOVIR DISOPROXIL FUMARATE
     Dosage: UNK
     Route: 065
     Dates: start: 201609, end: 201907
  5. ATRIPLA [Suspect]
     Active Substance: EFAVIRENZ\EMTRICITABINE\TENOFOVIR DISOPROXIL FUMARATE
     Indication: HIV infection
     Dosage: UNK
     Route: 048
     Dates: end: 2017
  6. ATRIPLA [Suspect]
     Active Substance: EFAVIRENZ\EMTRICITABINE\TENOFOVIR DISOPROXIL FUMARATE
     Dosage: UNK
     Route: 065
     Dates: start: 2010, end: 2013
  7. STRIBILD [Suspect]
     Active Substance: COBICISTAT\ELVITEGRAVIR\EMTRICITABINE\TENOFOVIR DISOPROXIL FUMARATE
     Indication: HIV infection
     Dosage: UNK
     Route: 048
     Dates: end: 2017
  8. STRIBILD [Suspect]
     Active Substance: COBICISTAT\ELVITEGRAVIR\EMTRICITABINE\TENOFOVIR DISOPROXIL FUMARATE
     Dosage: UNK
     Route: 048
     Dates: start: 20140811, end: 201505
  9. STRIBILD [Suspect]
     Active Substance: COBICISTAT\ELVITEGRAVIR\EMTRICITABINE\TENOFOVIR DISOPROXIL FUMARATE
     Dosage: UNK
     Route: 048
     Dates: start: 20140811, end: 201604
  10. GENVOYA [Concomitant]
     Active Substance: COBICISTAT\ELVITEGRAVIR\EMTRICITABINE\TENOFOVIR ALAFENAMIDE FUMARATE
  11. EPZICOM [Concomitant]
     Active Substance: ABACAVIR SULFATE\LAMIVUDINE
  12. AMLODIPINE BESYLATE [Concomitant]
     Active Substance: AMLODIPINE BESYLATE
  13. HYDROCHLOROTHIAZIDE [Concomitant]
     Active Substance: HYDROCHLOROTHIAZIDE
  14. ISENTRESS [Concomitant]
     Active Substance: RALTEGRAVIR POTASSIUM
  15. NORVIR [Concomitant]
     Active Substance: RITONAVIR
  16. PREZISTA [Concomitant]
     Active Substance: DARUNAVIR ETHANOLATE
  17. ABACAVIR AND LAMIVUDINE [Concomitant]
     Active Substance: ABACAVIR SULFATE\LAMIVUDINE
  18. AMOXICILLIN [Concomitant]
     Active Substance: AMOXICILLIN
  19. ATORVASTATIN [Concomitant]
     Active Substance: ATORVASTATIN
  20. AZITHROMYCIN [Concomitant]
     Active Substance: AZITHROMYCIN
  21. BACLOFEN [Concomitant]
     Active Substance: BACLOFEN
  22. BENZONATATE [Concomitant]
     Active Substance: BENZONATATE
  23. BISACODYL [Concomitant]
     Active Substance: BISACODYL
  24. CEFDINIR [Concomitant]
     Active Substance: CEFDINIR
  25. CEPHALEXIN [Concomitant]
     Active Substance: CEPHALEXIN
  26. AMMONIUM CHLORIDE\DEXTROMETHORPHAN\SODIUM CITRATE [Concomitant]
     Active Substance: AMMONIUM CHLORIDE\DEXTROMETHORPHAN\SODIUM CITRATE
  27. CRESTOR [Concomitant]
     Active Substance: ROSUVASTATIN CALCIUM
  28. CYCLOBENZAPRINE [Concomitant]
     Active Substance: CYCLOBENZAPRINE
  29. DICLOFEN [DICLOFENAC SODIUM] [Concomitant]
  30. DOXYCYCLINE [Concomitant]
     Active Substance: DOXYCYCLINE
  31. FLUCONAZOLE [Concomitant]
     Active Substance: FLUCONAZOLE
  32. FAMOTIDINE [Concomitant]
     Active Substance: FAMOTIDINE
  33. GLIPIZIDE [Concomitant]
     Active Substance: GLIPIZIDE
  34. HYDROCODONE BITARTRATE AND ACETAMINOPHEN [Concomitant]
     Active Substance: ACETAMINOPHEN\HYDROCODONE BITARTRATE
  35. HYDROXYZINE HYDROCHLORIDE [Concomitant]
     Active Substance: HYDROXYZINE HYDROCHLORIDE
  36. IBUPROFEN [Concomitant]
     Active Substance: IBUPROFEN
  37. INVOKANA [Concomitant]
     Active Substance: CANAGLIFLOZIN
  38. LEVEMIR [Concomitant]
     Active Substance: INSULIN DETEMIR
  39. LEVOFLOXACIN [Concomitant]
     Active Substance: LEVOFLOXACIN
  40. LIPITOR [Concomitant]
     Active Substance: ATORVASTATIN CALCIUM
  41. HYDROCHLOROTHIAZIDE\LISINOPRIL [Concomitant]
     Active Substance: HYDROCHLOROTHIAZIDE\LISINOPRIL
  42. LISINOPRIL [Concomitant]
     Active Substance: LISINOPRIL
  43. LOSARTAN POTASSIUM [Concomitant]
     Active Substance: LOSARTAN POTASSIUM
  44. LYRICA [Concomitant]
     Active Substance: PREGABALIN
  45. MELOXICAM [Concomitant]
     Active Substance: MELOXICAM
  46. METFORMIN HYDROCHLORIDE [Concomitant]
     Active Substance: METFORMIN HYDROCHLORIDE
  47. METHOCARBAMOL [Concomitant]
     Active Substance: METHOCARBAMOL
  48. MINOCYCLINE [Concomitant]
     Active Substance: MINOCYCLINE HYDROCHLORIDE
  49. NAPROXEN [Concomitant]
     Active Substance: NAPROXEN
  50. NOVOLOG [Concomitant]
     Active Substance: INSULIN ASPART
  51. NYSTATIN [Concomitant]
     Active Substance: NYSTATIN
  52. OMEPRAZOLE [Concomitant]
     Active Substance: OMEPRAZOLE
  53. ONDANSETRON [Concomitant]
     Active Substance: ONDANSETRON
  54. OSELTAMIVIRI PHOSPHAS [Concomitant]
  55. POTASSIUM CHLORIDE [Concomitant]
     Active Substance: POTASSIUM CHLORIDE
  56. PREDNISONE [Concomitant]
     Active Substance: PREDNISONE
  57. PROAIR HFA [Concomitant]
     Active Substance: ALBUTEROL SULFATE
  58. PROMETHAZINE [Concomitant]
     Active Substance: PROMETHAZINE HYDROCHLORIDE
  59. RANITIDINE [Concomitant]
     Active Substance: RANITIDINE
  60. ROBAXIN [Concomitant]
     Active Substance: METHOCARBAMOL
  61. ROSUVASTATIN [Concomitant]
     Active Substance: ROSUVASTATIN
  62. TIZANIDINE HYDROCHLORIDE [Concomitant]
     Active Substance: TIZANIDINE HYDROCHLORIDE
  63. TAMIFLU [Concomitant]
     Active Substance: OSELTAMIVIR PHOSPHATE
  64. TRULICITY [Concomitant]
     Active Substance: DULAGLUTIDE
  65. VALSARTAN [Concomitant]
     Active Substance: VALSARTAN
  66. VENTOLIN HFA [Concomitant]
     Active Substance: ALBUTEROL SULFATE
  67. VIAGRA [Concomitant]
     Active Substance: SILDENAFIL CITRATE
  68. VIRTUSSIN AC [Concomitant]
     Active Substance: CODEINE PHOSPHATE\GUAIFENESIN
  69. NORCO [Concomitant]
     Active Substance: ACETAMINOPHEN\HYDROCODONE BITARTRATE
  70. OXYCODONE AND ACETAMINOPHEN [Concomitant]
     Active Substance: ACETAMINOPHEN\OXYCODONE HYDROCHLORIDE
  71. ELIQUIS [Concomitant]
     Active Substance: APIXABAN
  72. CLARITHROMYCIN [Concomitant]
     Active Substance: CLARITHROMYCIN

REACTIONS (13)
  - Osteoporosis [Unknown]
  - Chronic kidney disease [Not Recovered/Not Resolved]
  - Bone density decreased [Unknown]
  - Emotional distress [Not Recovered/Not Resolved]
  - Anhedonia [Not Recovered/Not Resolved]
  - Economic problem [Unknown]
  - Vitamin D deficiency [Not Recovered/Not Resolved]
  - Intervertebral disc degeneration [Recovered/Resolved]
  - Intervertebral disc degeneration [Recovered/Resolved]
  - Osteoarthritis [Not Recovered/Not Resolved]
  - Anxiety [Not Recovered/Not Resolved]
  - Pain [Not Recovered/Not Resolved]
  - Depression [Not Recovered/Not Resolved]

NARRATIVE: CASE EVENT DATE: 20140619
